FAERS Safety Report 6665992-9 (Version None)
Quarter: 2010Q2

REPORT INFORMATION
  Report Type: 
  Country: None (occurrence: None)
  Receive Date: 20100402
  Receipt Date: 20100324
  Transmission Date: 20101027
  Serious: Yes (Hospitalization)
  Sender: FDA-Public Use
  Company Number: CA-JNJFOC-20100308184

PATIENT
  Sex: Female
  Weight: 115 kg

DRUGS (9)
  1. REMICADE [Suspect]
     Indication: RHEUMATOID ARTHRITIS
     Route: 042
  2. METHOTREXATE [Concomitant]
  3. PLAQUENIL [Concomitant]
  4. RAMIPRIL [Concomitant]
  5. AMLODIPINE BESYLATE [Concomitant]
  6. FOLIC ACID [Concomitant]
  7. TRAMADOL HCL [Concomitant]
  8. NOVO-HYDRAZIDE [Concomitant]
  9. LANSOPRAZOLE [Concomitant]

REACTIONS (3)
  - BLOOD POTASSIUM DECREASED [None]
  - FALL [None]
  - URINARY TRACT INFECTION [None]
